FAERS Safety Report 19421798 (Version 1)
Quarter: 2021Q2

REPORT INFORMATION
  Report Type: Spontaneous
  Country: US (occurrence: US)
  Receive Date: 20210615
  Receipt Date: 20210615
  Transmission Date: 20210717
  Serious: No
  Sender: FDA-Public Use
  Company Number: None

PATIENT
  Age: 33 Year
  Sex: Male
  Weight: 70 kg

DRUGS (1)
  1. BUSPIRONE (BUSPIRONE HCL 10MG TAB) [Suspect]
     Active Substance: BUSPIRONE HYDROCHLORIDE
     Indication: ANXIETY
     Route: 048
     Dates: start: 20210216, end: 20210216

REACTIONS (7)
  - Skin discolouration [None]
  - Dyspnoea [None]
  - Unresponsive to stimuli [None]
  - Abdominal pain [None]
  - Seizure [None]
  - Confusional state [None]
  - Asthenia [None]

NARRATIVE: CASE EVENT DATE: 20210216
